FAERS Safety Report 10164242 (Version 1)
Quarter: 2014Q2

REPORT INFORMATION
  Report Type: Spontaneous
  Country: US (occurrence: US)
  Receive Date: 20140510
  Receipt Date: 20140510
  Transmission Date: 20141212
  Serious: No
  Sender: FDA-Public Use
  Company Number: US-BRISTOL-MYERS SQUIBB COMPANY-20036794

PATIENT
  Age: 55 Year
  Sex: Male
  Weight: 133.78 kg

DRUGS (4)
  1. BYETTA [Suspect]
     Indication: TYPE 2 DIABETES MELLITUS
  2. METFORMIN [Concomitant]
  3. PIOGLITAZONE HCL [Concomitant]
  4. GLIPIZIDE [Concomitant]

REACTIONS (3)
  - Decreased appetite [Unknown]
  - Product quality issue [Unknown]
  - Underdose [Unknown]
